FAERS Safety Report 5724740-7 (Version None)
Quarter: 2008Q2

REPORT INFORMATION
  Report Type: 
  Country: None (occurrence: None)
  Receive Date: 20080421
  Receipt Date: 20080409
  Transmission Date: 20081010
  Serious: Yes (Hospitalization)
  Sender: FDA-Public Use
  Company Number: WSDF-00510

PATIENT
  Age: 14 Year
  Sex: Female
  Weight: 54 kg

DRUGS (2)
  1. WINRHO SDF [Suspect]
     Indication: IDIOPATHIC THROMBOCYTOPENIC PURPURA
     Dosage: 72 UG/KG ONCE IV
     Route: 042
     Dates: start: 20040804, end: 20040804
  2. PREDNISONE [Concomitant]

REACTIONS (5)
  - ACUTE RESPIRATORY DISTRESS SYNDROME [None]
  - HAEMOLYSIS [None]
  - PRESYNCOPE [None]
  - PULMONARY OEDEMA [None]
  - TRANSFUSION-RELATED ACUTE LUNG INJURY [None]
